FAERS Safety Report 9071297 (Version 4)
Quarter: 2014Q2

REPORT INFORMATION
  Report Type: Report from Study
  Country: JP (occurrence: JP)
  Receive Date: 20130129
  Receipt Date: 20140604
  Transmission Date: 20141212
  Serious: Yes (Other)
  Sender: FDA-Public Use
  Company Number: JP-GILEAD-2013-0068653

PATIENT
  Age: 55 Year
  Sex: Male

DRUGS (13)
  1. AMBRISENTAN [Suspect]
     Indication: PULMONARY ARTERIAL HYPERTENSION
     Dosage: 5 MG, QD
     Route: 048
     Dates: start: 20110928, end: 20130109
  2. AMBRISENTAN [Suspect]
     Dosage: 7.5 MG, QD
     Route: 048
     Dates: start: 20130110
  3. ADCIRCA [Suspect]
     Indication: PULMONARY ARTERIAL HYPERTENSION
     Dosage: UNK
     Route: 048
  4. BERASUS [Suspect]
     Indication: PULMONARY ARTERIAL HYPERTENSION
     Dosage: UNK
     Route: 048
  5. PREDONINE                          /00016201/ [Suspect]
     Indication: PRODUCT USED FOR UNKNOWN INDICATION
     Dosage: UNK
     Route: 048
  6. TOYOFAROL [Concomitant]
     Indication: PROPHYLAXIS
     Dosage: UNK
     Route: 048
  7. TAKEPRON [Concomitant]
     Indication: PROPHYLAXIS
     Route: 048
  8. HYPEN                              /00613801/ [Concomitant]
     Route: 048
  9. GRIMAC [Concomitant]
     Indication: PROPHYLAXIS AGAINST GASTROINTESTINAL ULCER
     Route: 048
  10. MUCODYNE [Concomitant]
     Route: 048
  11. PROGRAF [Concomitant]
     Route: 048
  12. BACTRAMIN [Concomitant]
     Indication: PROPHYLAXIS
     Route: 048
  13. INDOMETACIN [Concomitant]
     Dosage: UNK
     Route: 062
     Dates: end: 20130213

REACTIONS (5)
  - Haematochezia [Recovered/Resolved]
  - White blood cell count increased [Recovered/Resolved]
  - Flushing [Not Recovered/Not Resolved]
  - Pruritus [Recovering/Resolving]
  - Epistaxis [Recovered/Resolved]
